FAERS Safety Report 17717562 (Version 4)
Quarter: 2022Q4

REPORT INFORMATION
  Report Type: Report from Study
  Country: US (occurrence: US)
  Receive Date: 20200428
  Receipt Date: 20221121
  Transmission Date: 20230112
  Serious: No
  Sender: FDA-Public Use
  Company Number: US-KYOWAKIRIN-2020BKK006519

PATIENT

DRUGS (15)
  1. CRYSVITA [Suspect]
     Active Substance: BUROSUMAB-TWZA
     Indication: Hereditary hypophosphataemic rickets
     Dosage: 20 MG, 1X/4 WEEKS, 80 MG IN TOTAL (COMBINED TWO 30 MG VIALS AND ONE 20 MG VIALS)
     Route: 058
  2. CRYSVITA [Suspect]
     Active Substance: BUROSUMAB-TWZA
     Dosage: 20 MG, 1X/4 WEEKS, 80 MG IN TOTAL (COMBINED TWO 30 MG VIALS AND ONE 20 MG VIALS)
     Route: 058
  3. CRYSVITA [Suspect]
     Active Substance: BUROSUMAB-TWZA
     Dosage: 20 MG, 1X/4 WEEKS, 80 MG IN TOTAL (COMBINED TWO 30 MG VIALS AND ONE 20 MG VIALS)
     Route: 058
  4. CRYSVITA [Suspect]
     Active Substance: BUROSUMAB-TWZA
     Dosage: 20 MG, 1X/4 WEEKS (80 MG (TWO 30 MG VIALS AND ONE 20 MG VIA)
     Route: 058
  5. CRYSVITA [Suspect]
     Active Substance: BUROSUMAB-TWZA
     Indication: Hereditary hypophosphataemic rickets
     Dosage: 80 MG IN TOTAL (COMBINED TWO 30 MG VIALS AND ONE 20 MG VIALS), EVERY 4 WEEKS
     Route: 058
  6. CRYSVITA [Suspect]
     Active Substance: BUROSUMAB-TWZA
     Dosage: 80 MG IN TOTAL (COMBINED TWO 30 MG VIALS AND ONE 20 MG VIALS), EVERY 4 WEEKS
     Route: 058
  7. CRYSVITA [Suspect]
     Active Substance: BUROSUMAB-TWZA
     Dosage: 80 MG IN TOTAL (COMBINED TWO 30 MG VIALS AND ONE 20 MG VIALS), EVERY 4 WEEKS
     Route: 058
  8. CRYSVITA [Suspect]
     Active Substance: BUROSUMAB-TWZA
     Dosage: 30 MG, 1X/4 WEEKS (80 MG (TWO 30 MG VIALS AND ONE 20 MG VIA)
     Route: 058
  9. MUCINEX [Concomitant]
     Active Substance: GUAIFENESIN
     Indication: Product used for unknown indication
     Dosage: 1200 MG
     Route: 065
  10. XYZAL [Concomitant]
     Active Substance: LEVOCETIRIZINE DIHYDROCHLORIDE
     Indication: Product used for unknown indication
     Dosage: 5 MG
     Route: 065
  11. AUGMENTIN [Concomitant]
     Active Substance: AMOXICILLIN\CLAVULANATE POTASSIUM
     Indication: Product used for unknown indication
     Dosage: 875-125 MG
     Route: 065
  12. ELASOMERAN [Concomitant]
     Active Substance: ELASOMERAN
     Indication: Product used for unknown indication
     Dosage: UNK
     Route: 065
  13. VITAMIN D2 [Concomitant]
     Active Substance: ERGOCALCIFEROL
     Indication: Product used for unknown indication
     Dosage: 1250 UG
     Route: 065
  14. BACLOFEN [Concomitant]
     Active Substance: BACLOFEN
     Indication: Product used for unknown indication
     Dosage: 10 MG
     Route: 065
  15. LOSARTAN POTASSIUM [Concomitant]
     Active Substance: LOSARTAN POTASSIUM
     Indication: Product used for unknown indication
     Dosage: 100 MG
     Route: 065

REACTIONS (12)
  - Ear infection [Unknown]
  - Hypoacusis [Unknown]
  - Pain in jaw [Not Recovered/Not Resolved]
  - Musculoskeletal stiffness [Not Recovered/Not Resolved]
  - Vertigo [Unknown]
  - Sinusitis [Unknown]
  - Rhinitis [Unknown]
  - Tenderness [Unknown]
  - Arthralgia [Unknown]
  - Headache [Unknown]
  - Dizziness [Unknown]
  - Pain [Unknown]
